FAERS Safety Report 7821738-X (Version None)
Quarter: 2011Q4

REPORT INFORMATION
  Report Type: 
  Country: None (occurrence: None)
  Receive Date: 20111018
  Receipt Date: 20101110
  Transmission Date: 20120403
  Serious: No
  Sender: FDA-Public Use
  Company Number: US-ASTRAZENECA-2010SE53643

PATIENT
  Age: 5 Year
  Sex: Male

DRUGS (1)
  1. SYMBICORT [Suspect]
     Dosage: 160/4.5 HS
     Route: 055
     Dates: start: 20100601

REACTIONS (2)
  - SOMNAMBULISM [None]
  - SLEEP TALKING [None]
